FAERS Safety Report 4948163-3 (Version None)
Quarter: 2006Q1

REPORT INFORMATION
  Report Type: 
  Country: None (occurrence: None)
  Receive Date: 20060313
  Receipt Date: 20060228
  Transmission Date: 20060701
  Serious: Yes (Life-Threatening, Hospitalization)
  Sender: FDA-Public Use
  Company Number: HQWYE455008NOV05

PATIENT
  Age: 74 Year
  Sex: Male

DRUGS (7)
  1. CORDARONE [Suspect]
     Indication: ARRHYTHMIA
     Dosage: SEE IMAGE
     Route: 048
     Dates: start: 20021001, end: 20031001
  2. CORDARONE [Suspect]
     Indication: ATRIAL FIBRILLATION
     Dosage: SEE IMAGE
     Route: 048
     Dates: start: 20021001, end: 20031001
  3. CORDARONE [Suspect]
     Indication: ARRHYTHMIA
     Dosage: SEE IMAGE
     Route: 048
     Dates: start: 20030101, end: 20051027
  4. CORDARONE [Suspect]
     Indication: ATRIAL FIBRILLATION
     Dosage: SEE IMAGE
     Route: 048
     Dates: start: 20030101, end: 20051027
  5. MARCUMAR [Concomitant]
  6. COVERSUM (PERINDOPRIL) [Concomitant]
  7. BISOPROLOL (BISOPROLOL) [Concomitant]

REACTIONS (11)
  - ATRIAL FIBRILLATION [None]
  - ATRIOVENTRICULAR BLOCK FIRST DEGREE [None]
  - BUNDLE BRANCH BLOCK LEFT [None]
  - CARDIAC FAILURE [None]
  - CONDITION AGGRAVATED [None]
  - DRUG EFFECT DECREASED [None]
  - HYPERTHYROIDISM [None]
  - PROTHROMBIN TIME RATIO DECREASED [None]
  - TACHYARRHYTHMIA [None]
  - TACHYCARDIA [None]
  - WEIGHT DECREASED [None]
